FAERS Safety Report 24850708 (Version 1)
Quarter: 2025Q1

REPORT INFORMATION
  Report Type: Other
  Country: CA (occurrence: CA)
  Receive Date: 20250116
  Receipt Date: 20250116
  Transmission Date: 20250409
  Serious: Yes (Death, Life-Threatening, Hospitalization, Other)
  Sender: PFIZER
  Company Number: CA-PFIZER INC-202500008567

PATIENT

DRUGS (1)
  1. BEVACIZUMAB [Suspect]
     Active Substance: BEVACIZUMAB
     Indication: Metastases to peritoneum
     Route: 065

REACTIONS (12)
  - Death [Fatal]
  - Anastomotic leak [Fatal]
  - Colorectal cancer metastatic [Fatal]
  - Deep vein thrombosis [Fatal]
  - Intra-abdominal fluid collection [Fatal]
  - Post procedural complication [Fatal]
  - Postoperative ileus [Fatal]
  - Postoperative wound infection [Fatal]
  - Therapy partial responder [Fatal]
  - Toxicity to various agents [Fatal]
  - Wound dehiscence [Fatal]
  - Off label use [Unknown]
